FAERS Safety Report 7057449-0 (Version None)
Quarter: 2010Q4

REPORT INFORMATION
  Report Type: 
  Country: None (occurrence: None)
  Receive Date: 20101022
  Receipt Date: 20101007
  Transmission Date: 20110411
  Serious: Yes (Hospitalization)
  Sender: FDA-Public Use
  Company Number: PHHY2010BR67274

PATIENT
  Sex: Female

DRUGS (5)
  1. DIOVAN HCT [Suspect]
     Indication: HYPERTENSION
     Dosage: 1 TABLET (160/12.5 MG), ONCE A DAY
     Route: 048
  2. ADALAT [Concomitant]
     Indication: HYPERTENSION
     Dosage: 1 TABLET (10 MG) ONCE A DAY
     Route: 048
  3. ASPIRIN [Concomitant]
     Indication: ARRHYTHMIA
     Dosage: 1 TABLET (100 MG) ONCE A DAY
     Route: 048
  4. ANCORON [Concomitant]
     Indication: ARRHYTHMIA
     Dosage: 1 TABLET (100 MG) ONCE A DAY
     Route: 048
  5. SIMVASTATIN [Concomitant]
     Indication: ARRHYTHMIA
     Dosage: 1 TABLET (40 MG) ONCE A DAY
     Route: 048

REACTIONS (3)
  - BLOOD PRESSURE INCREASED [None]
  - DRUG DOSE OMISSION [None]
  - PNEUMONIA [None]
